FAERS Safety Report 24829092 (Version 1)
Quarter: 2025Q1

REPORT INFORMATION
  Report Type: Spontaneous
  Country: US (occurrence: US)
  Receive Date: 20250110
  Receipt Date: 20250110
  Transmission Date: 20250409
  Serious: No
  Sender: ELI LILLY AND COMPANY
  Company Number: US-ELI_LILLY_AND_COMPANY-US202501001601

PATIENT
  Age: 74 Year
  Sex: Female

DRUGS (3)
  1. ZEPBOUND [Suspect]
     Active Substance: TIRZEPATIDE
     Indication: Weight control
     Route: 058
     Dates: start: 20241118
  2. ZEPBOUND [Suspect]
     Active Substance: TIRZEPATIDE
     Indication: Weight control
     Route: 058
     Dates: start: 20241118
  3. ZEPBOUND [Suspect]
     Active Substance: TIRZEPATIDE
     Route: 058

REACTIONS (8)
  - Incorrect dose administered [Unknown]
  - Fall [Unknown]
  - Intervertebral disc protrusion [Unknown]
  - Pain [Unknown]
  - General physical health deterioration [Unknown]
  - Drug ineffective [Unknown]
  - Injection site bruising [Unknown]
  - Injection site pain [Unknown]
